FAERS Safety Report 7736930-2 (Version None)
Quarter: 2011Q3

REPORT INFORMATION
  Report Type: 
  Country: None (occurrence: None)
  Receive Date: 20110908
  Receipt Date: 20110902
  Transmission Date: 20111222
  Serious: Yes (Other)
  Sender: FDA-Public Use
  Company Number: BR-BAYER-2011-055539

PATIENT
  Age: 52 Year
  Sex: Female

DRUGS (2)
  1. INTERFERON BETA-1B [Suspect]
     Indication: RELAPSING-REMITTING MULTIPLE SCLEROSIS
     Dosage: 8 MIU, QOD
     Route: 058
     Dates: start: 20110622, end: 20110801
  2. RETEMIC [Concomitant]
     Indication: URINARY INCONTINENCE
     Dosage: 5 MG, UNK
     Route: 048

REACTIONS (4)
  - PYREXIA [None]
  - MUSCLE RIGIDITY [None]
  - BACK PAIN [None]
  - LYMPHADENOPATHY [None]
